FAERS Safety Report 26041540 (Version 1)
Quarter: 2025Q4

REPORT INFORMATION
  Report Type: Spontaneous
  Country: US (occurrence: US)
  Receive Date: 20251113
  Receipt Date: 20251113
  Transmission Date: 20260117
  Serious: Yes (Hospitalization, Other)
  Sender: AMNEAL
  Company Number: US-AMNEAL PHARMACEUTICALS-2025-AMRX-04351

PATIENT
  Sex: Female
  Weight: 77.098 kg

DRUGS (4)
  1. CREXONT [Suspect]
     Active Substance: CARBIDOPA\LEVODOPA
     Indication: Parkinson^s disease
     Dosage: 70/280MG, 1 CAPSULES EVERY 4 HOUR
     Route: 048
  2. CREXONT [Suspect]
     Active Substance: CARBIDOPA\LEVODOPA
     Dosage: 70/280MG, 2 CAPSULES EVERY 6 HOURS
     Route: 048
  3. CREXONT [Suspect]
     Active Substance: CARBIDOPA\LEVODOPA
     Dosage: 70/280MG, 2 CAPSULES, 2 /DAY
     Route: 048
  4. CREXONT [Suspect]
     Active Substance: CARBIDOPA\LEVODOPA
     Dosage: 70/280MG, 1 CAPSULES, 3 /DAY
     Route: 048

REACTIONS (2)
  - Cerebral thrombosis [Recovering/Resolving]
  - Confusional state [Recovering/Resolving]
